FAERS Safety Report 7039167-8 (Version None)
Quarter: 2010Q4

REPORT INFORMATION
  Report Type: 
  Country: None (occurrence: None)
  Receive Date: 20101012
  Receipt Date: 20101004
  Transmission Date: 20110411
  Serious: Yes (Hospitalization)
  Sender: FDA-Public Use
  Company Number: PHFR2010IE04480

PATIENT
  Sex: Female

DRUGS (2)
  1. CLOZARIL [Suspect]
     Indication: SCHIZOPHRENIA
     Route: 048
     Dates: start: 20040720, end: 20100929
  2. CLOZARIL [Suspect]
     Dosage: UNK

REACTIONS (1)
  - MULTIPLE DRUG OVERDOSE [None]
